FAERS Safety Report 24163747 (Version 1)
Quarter: 2024Q3

REPORT INFORMATION
  Report Type: Spontaneous
  Country: US (occurrence: None)
  Receive Date: 20240801
  Receipt Date: 20240801
  Transmission Date: 20241017
  Serious: Yes (Other)
  Sender: Public
  Company Number: None

PATIENT
  Age: 54 Year
  Sex: Male
  Weight: 103.5 kg

DRUGS (10)
  1. .DELTA.8-TETRAHYDROCANNABINOL\HERBALS [Suspect]
     Active Substance: .DELTA.8-TETRAHYDROCANNABINOL\HERBALS
     Indication: Post-traumatic stress disorder
     Dosage: OTHER QUANTITY : 1 GUMMY;?OTHER FREQUENCY : UP TO 15 A DAY;?
     Route: 048
  2. WELLBUTRIN [Concomitant]
     Active Substance: BUPROPION HYDROCHLORIDE
  3. TRAZODONE [Concomitant]
     Active Substance: TRAZODONE HYDROCHLORIDE
  4. ADDERALL [Concomitant]
     Active Substance: AMPHETAMINE ASPARTATE\AMPHETAMINE SULFATE\DEXTROAMPHETAMINE SACCHARATE\DEXTROAMPHETAMINE SULFATE
  5. CLONAZEPAM [Concomitant]
     Active Substance: CLONAZEPAM
  6. BUSPIRONE [Concomitant]
     Active Substance: BUSPIRONE HYDROCHLORIDE
  7. PROPRANOLOL [Concomitant]
     Active Substance: PROPRANOLOL HYDROCHLORIDE
  8. PRAZOSIN [Concomitant]
     Active Substance: PRAZOSIN
  9. equate allergy pills [Concomitant]
  10. equate men^s one daily vitamin [Concomitant]

REACTIONS (4)
  - Drug dependence [None]
  - Economic problem [None]
  - Mental disorder [None]
  - Withdrawal syndrome [None]

NARRATIVE: CASE EVENT DATE: 20240801
